FAERS Safety Report 6447510-3 (Version None)
Quarter: 2009Q4

REPORT INFORMATION
  Report Type: 
  Country: None (occurrence: None)
  Receive Date: 20091119
  Receipt Date: 20091110
  Transmission Date: 20100525
  Serious: Yes (Death, Hospitalization, Other)
  Sender: FDA-Public Use
  Company Number: US-BAXTER-2009BH017213

PATIENT
  Age: 49 Year
  Sex: Female

DRUGS (4)
  1. DIANEAL [Suspect]
     Indication: PERITONEAL DIALYSIS
     Route: 033
     Dates: start: 19990101, end: 20091001
  2. DIANEAL [Suspect]
     Route: 033
     Dates: start: 19990101, end: 20091001
  3. DIANEAL [Suspect]
     Indication: PERITONEAL DIALYSIS
     Route: 033
     Dates: start: 19990101, end: 20091001
  4. DIANEAL [Suspect]
     Route: 033
     Dates: start: 19990101, end: 20091001

REACTIONS (3)
  - CEREBRAL HAEMORRHAGE [None]
  - FUNGAL PERITONITIS [None]
  - SYNCOPE [None]
